FAERS Safety Report 10312238 (Version 1)
Quarter: 2014Q3

REPORT INFORMATION
  Report Type: Report from Study
  Country: US (occurrence: US)
  Receive Date: 20140718
  Receipt Date: 20140718
  Transmission Date: 20150326
  Serious: Yes (Other)
  Sender: FDA-Public Use
  Company Number: US-ROCHE-1436086

PATIENT
  Age: 13 Year
  Sex: Male
  Weight: 46.99 kg

DRUGS (3)
  1. NUTROPIN AQ [Suspect]
     Active Substance: SOMATROPIN
     Indication: GROWTH HORMONE DEFICIENCY
     Dosage: ONCE A DAY
     Route: 058
  2. BUPROPION [Concomitant]
     Active Substance: BUPROPION
     Indication: ATTENTION DEFICIT/HYPERACTIVITY DISORDER
     Route: 048
  3. FLUOXETINE [Concomitant]
     Active Substance: FLUOXETINE\FLUOXETINE HYDROCHLORIDE
     Indication: ATTENTION DEFICIT/HYPERACTIVITY DISORDER
     Route: 048

REACTIONS (6)
  - Drug dose omission [Unknown]
  - Middle insomnia [Unknown]
  - Anxiety [Unknown]
  - Gynaecomastia [Unknown]
  - Scoliosis [Unknown]
  - Back pain [Unknown]

NARRATIVE: CASE EVENT DATE: 201407
